FAERS Safety Report 18300443 (Version 1)
Quarter: 2020Q3

REPORT INFORMATION
  Report Type: Spontaneous
  Country: US (occurrence: US)
  Receive Date: 20200923
  Receipt Date: 20200923
  Transmission Date: 20201103
  Serious: Yes (Hospitalization, Other)
  Sender: FDA-Public Use
  Company Number: None

PATIENT
  Age: 77 Year
  Sex: Male
  Weight: 84 kg

DRUGS (1)
  1. CEFEPIME (CEFEPIME HCL 2GM/BAG INJ) [Suspect]
     Active Substance: CEFEPIME HYDROCHLORIDE
     Indication: SEIZURE
     Route: 042
     Dates: start: 20200807, end: 20200820

REACTIONS (7)
  - Seizure [None]
  - Renal impairment [None]
  - Toxicity to various agents [None]
  - Metabolic encephalopathy [None]
  - Myoclonus [None]
  - Neurotoxicity [None]
  - Toxic encephalopathy [None]

NARRATIVE: CASE EVENT DATE: 20200821
